FAERS Safety Report 7629596-3 (Version None)
Quarter: 2011Q3

REPORT INFORMATION
  Report Type: 
  Country: None (occurrence: None)
  Receive Date: 20110722
  Receipt Date: 20110712
  Transmission Date: 20111222
  Serious: Yes (Other)
  Sender: FDA-Public Use
  Company Number: ES-JNJFOC-20110706285

PATIENT
  Sex: Male

DRUGS (1)
  1. LISTERINE MENTOL [Suspect]
     Indication: DENTAL DISORDER PROPHYLAXIS
     Dosage: ONCE
     Route: 048
     Dates: start: 20110706, end: 20110706

REACTIONS (7)
  - LIP BLISTER [None]
  - STOMATITIS [None]
  - GLOSSODYNIA [None]
  - AGEUSIA [None]
  - ORAL DISCOMFORT [None]
  - PAIN [None]
  - WRONG TECHNIQUE IN DRUG USAGE PROCESS [None]
